FAERS Safety Report 8720526 (Version 2)
Quarter: 2015Q3

REPORT INFORMATION
  Report Type: Report from Study
  Country: US (occurrence: US)
  Receive Date: 20120813
  Receipt Date: 20150715
  Transmission Date: 20151125
  Serious: Yes (Hospitalization)
  Sender: FDA-Public Use
  Company Number: US-ROCHE-1098175

PATIENT
  Age: 38 Year
  Sex: Male

DRUGS (16)
  1. SODIUM CHLORIDE. [Concomitant]
     Active Substance: SODIUM CHLORIDE
  2. PEPCID [Concomitant]
     Active Substance: FAMOTIDINE
     Route: 065
  3. PROPOXYPHENE NAPSYLATE + APAP [Concomitant]
  4. NITRO-BID OINTMENT [Concomitant]
     Route: 065
  5. TYLENOL [Concomitant]
     Active Substance: ACETAMINOPHEN
     Route: 065
  6. GLYCERYL TRINITRATE [Concomitant]
     Active Substance: NITROGLYCERIN
  7. ASPIRIN. [Concomitant]
     Active Substance: ASPIRIN
     Route: 065
  8. CARAFATE [Concomitant]
     Active Substance: SUCRALFATE
     Dosage: EVERY 6 HOURS
     Route: 065
  9. ACTIVASE [Suspect]
     Active Substance: ALTEPLASE
     Indication: ACUTE MYOCARDIAL INFARCTION
     Route: 042
  10. NITROGLYCERIN SR [Concomitant]
     Active Substance: NITROGLYCERIN
     Route: 065
  11. CAPOTEN [Concomitant]
     Active Substance: CAPTOPRIL
  12. PEPCID [Concomitant]
     Active Substance: FAMOTIDINE
     Dosage: EVERY NIGHT AT BED TIME
     Route: 065
  13. CASANTHRANOL [Concomitant]
     Active Substance: CASANTHRANOL
  14. NITRO-DUR PATCH [Concomitant]
     Route: 065
  15. HEPARIN [Concomitant]
     Active Substance: HEPARIN SODIUM
     Dosage: 250000U
     Route: 065
  16. TENORMIN [Concomitant]
     Active Substance: ATENOLOL
     Route: 065

REACTIONS (5)
  - Chest discomfort [Unknown]
  - Anxiety [Unknown]
  - Ventricular tachycardia [Unknown]
  - Leukocytosis [Recovering/Resolving]
  - Pyrexia [Recovering/Resolving]

NARRATIVE: CASE EVENT DATE: 19931211
